FAERS Safety Report 6334459-X (Version None)
Quarter: 2009Q3

REPORT INFORMATION
  Report Type: 
  Country: None (occurrence: None)
  Receive Date: 20090831
  Receipt Date: 20090821
  Transmission Date: 20100115
  Serious: Yes (Hospitalization)
  Sender: FDA-Public Use
  Company Number: US-JNJFOC-20090807070

PATIENT
  Sex: Male
  Weight: 50.8 kg

DRUGS (3)
  1. REMICADE [Suspect]
     Dosage: RECEIVED 6 VIALS
     Route: 042
  2. REMICADE [Suspect]
     Indication: INFLAMMATORY BOWEL DISEASE
     Dosage: RECEIVED 5 VIALS
     Route: 042
  3. FLINTSTONES COMPLETE VITAMIN [Concomitant]
     Indication: VITAMIN SUPPLEMENTATION

REACTIONS (5)
  - COUGH [None]
  - DIARRHOEA HAEMORRHAGIC [None]
  - HEPATIC ENZYME INCREASED [None]
  - INCORRECT DOSE ADMINISTERED [None]
  - VOMITING [None]
